FAERS Safety Report 22704542 (Version 2)
Quarter: 2024Q4

REPORT INFORMATION
  Report Type: Spontaneous
  Country: GB (occurrence: GB)
  Receive Date: 20230714
  Receipt Date: 20241019
  Transmission Date: 20250115
  Serious: Yes (Other)
  Sender: SANDOZ
  Company Number: None

PATIENT
  Age: 38 Year
  Sex: Female
  Weight: 96 kg

DRUGS (14)
  1. CLARITHROMYCIN [Suspect]
     Active Substance: CLARITHROMYCIN
     Indication: Pharyngeal swelling
     Dosage: 500 MG
     Route: 048
  2. AMOXICILLIN [Concomitant]
     Active Substance: AMOXICILLIN
     Indication: Product used for unknown indication
     Dosage: 1 DOSAGE FORM, TID, STRENGTH- 125MG, 500MG, 250MG,1G, 250MG,500MG
     Route: 048
     Dates: start: 20230517, end: 20230524
  3. BECLOMETHASONE DIPROPIONATE [Concomitant]
     Active Substance: BECLOMETHASONE DIPROPIONATE
     Indication: Product used for unknown indication
     Dosage: 2 DOSAGE FORM, BID ROUTE OF ADMIN (FREE TEXT): RESPIRATORY (INHALATION)
     Route: 055
     Dates: start: 20210929
  4. AMOXICILLIN\CLAVULANATE POTASSIUM [Concomitant]
     Active Substance: AMOXICILLIN\CLAVULANATE POTASSIUM
     Indication: Product used for unknown indication
     Dosage: 1 DOSAGE FORM, TID
     Route: 065
     Dates: start: 20230414, end: 20230421
  5. DERMOL [Concomitant]
     Active Substance: BENZALKONIUM CHLORIDE\CHLORHEXIDINE HYDROCHLORIDE\ISOPROPYL MYRISTATE\PARAFFIN
     Indication: Product used for unknown indication
     Dosage: (USE AS DIRECTED)
     Route: 065
     Dates: start: 20220323
  6. FLUOXETINE [Concomitant]
     Active Substance: FLUOXETINE HYDROCHLORIDE
     Indication: Product used for unknown indication
     Dosage: 2 DOSAGE FORM, QD, STRENGTH- 10MG, 20MG AND 60MG
     Route: 065
     Dates: start: 20200721
  7. BUTYLSCOPOLAMINE BROMIDE [Concomitant]
     Active Substance: BUTYLSCOPOLAMINE BROMIDE
     Indication: Product used for unknown indication
     Dosage: 2 DOSAGE FORM, QID (AS NECESSARY, TAKE TWO 4 TIMES/DAY), STRENGTH- 20MG AND 10MG
     Route: 065
     Dates: start: 20230405
  8. POLYETHYLENE GLYCOLS [Concomitant]
     Active Substance: POLYETHYLENE GLYCOLS
     Indication: Product used for unknown indication
     Dosage: QD (ONE SACHET TO BE TAKEN EACH DAY, INCREASING BY)
     Route: 065
     Dates: start: 20201027
  9. MILLINETTE [Concomitant]
     Indication: Product used for unknown indication
     Dosage: 1 DOSAGE FORM, QD (FOR 21 DAYS; SUBSEQUENT COURSE)
     Route: 048
     Dates: start: 20200813, end: 20230405
  10. MOMETASONE [Concomitant]
     Active Substance: MOMETASONE
     Indication: Product used for unknown indication
     Dosage: 2 DOSAGE FORM, BID (IN EACH NOSTRIL) STRENGTH (0.1%, 50UG)
     Route: 045
     Dates: start: 20201027
  11. OMEPRAZOLE [Concomitant]
     Active Substance: OMEPRAZOLE
     Indication: Product used for unknown indication
     Dosage: 1 DOSAGE FORM, QD STRENGTH- 4MG/ML,10MG,40MG,2MG/ML, 20MG,40MG)
     Route: 065
     Dates: start: 20200106
  12. ORLISTAT [Concomitant]
     Active Substance: ORLISTAT
     Indication: Product used for unknown indication
     Dosage: 120 MG, TID (TAKEN IMMEDIATELY), STRENGTH 120MG
     Route: 065
     Dates: start: 20230524
  13. PREGABALIN [Concomitant]
     Active Substance: PREGABALIN
     Indication: Product used for unknown indication
     Dosage: 1 DOSAGE FORM, BID, (STRENGTH -300MG,225MG,22MG,20MG/ML,100MG,25MG,200MG,50MG,150MG, 75 MG)
     Route: 065
     Dates: start: 20220701
  14. ALBUTEROL [Concomitant]
     Active Substance: ALBUTEROL
     Indication: Product used for unknown indication
     Dosage: QID (AS NECESSARY, 1-2 PUFFS, UP TO FOUR TIMES A DAY) ROUTE OF ADMIN (FREE TEXT): RESPIRATORY (INHAL
     Route: 055
     Dates: start: 20210929

REACTIONS (1)
  - Pharyngeal swelling [Recovered/Resolved]
